FAERS Safety Report 16793295 (Version 1)
Quarter: 2019Q3

REPORT INFORMATION
  Report Type: Report from Study
  Country: US (occurrence: US)
  Receive Date: 20190911
  Receipt Date: 20190911
  Transmission Date: 20191005
  Serious: Yes (Death)
  Sender: FDA-Public Use
  Company Number: US-BIOGEN-2019BI00784413

PATIENT
  Sex: Female

DRUGS (8)
  1. AMPYRA [Suspect]
     Active Substance: DALFAMPRIDINE
     Indication: PRODUCT USED FOR UNKNOWN INDICATION
     Route: 065
  2. GEMFIBROZIL. [Concomitant]
     Active Substance: GEMFIBROZIL
     Indication: PRODUCT USED FOR UNKNOWN INDICATION
  3. METFORMIN HCL [Concomitant]
     Active Substance: METFORMIN HYDROCHLORIDE
     Indication: PRODUCT USED FOR UNKNOWN INDICATION
  4. AVONEX [Suspect]
     Active Substance: INTERFERON BETA-1A
     Indication: PRODUCT USED FOR UNKNOWN INDICATION
     Dosage: INJECT 30 MCG INTRAMUSCULARLY ONCE WEEKLY
     Route: 030
  5. VITAMIN B12 [Concomitant]
     Active Substance: CYANOCOBALAMIN
     Indication: PRODUCT USED FOR UNKNOWN INDICATION
  6. LISINOPRIL. [Concomitant]
     Active Substance: LISINOPRIL
     Indication: PRODUCT USED FOR UNKNOWN INDICATION
  7. SYNTHROID [Concomitant]
     Active Substance: LEVOTHYROXINE SODIUM
     Indication: PRODUCT USED FOR UNKNOWN INDICATION
  8. CRESOL [Concomitant]
     Active Substance: CRESOL
     Indication: PRODUCT USED FOR UNKNOWN INDICATION

REACTIONS (1)
  - Death [Fatal]
